FAERS Safety Report 6740097-7 (Version None)
Quarter: 2010Q2

REPORT INFORMATION
  Report Type: 
  Country: None (occurrence: None)
  Receive Date: 20100525
  Receipt Date: 20100514
  Transmission Date: 20101027
  Serious: Yes (Other)
  Sender: FDA-Public Use
  Company Number: PE-PFIZER INC-2010061032

PATIENT
  Age: 65 Year
  Sex: Male
  Weight: 67 kg

DRUGS (10)
  1. BLINDED *NO SUBJECT DRUG [Suspect]
     Indication: PROSTATE CANCER METASTATIC
     Dosage: 37.5 MG, 1X/DAY
     Route: 048
     Dates: start: 20090724, end: 20100503
  2. BLINDED *PLACEBO [Suspect]
     Indication: PROSTATE CANCER METASTATIC
     Dosage: 37.5 MG, 1X/DAY
     Route: 048
     Dates: start: 20090724, end: 20100503
  3. BLINDED SUNITINIB MALATE [Suspect]
     Indication: PROSTATE CANCER METASTATIC
     Dosage: 37.5 MG, 1X/DAY
     Route: 048
     Dates: start: 20090724, end: 20100503
  4. *PREDNISONE [Suspect]
     Indication: PROSTATE CANCER METASTATIC
     Dosage: 5 MG, 2X/DAY
     Route: 048
     Dates: start: 20090724, end: 20100503
  5. AMLODIPINE BESILATE [Concomitant]
     Indication: HYPERTENSION
     Dosage: 10 MG, 2X/DAY
     Route: 048
     Dates: start: 20100128
  6. VALSARTAN [Concomitant]
     Indication: HYPERTENSION
     Dosage: 160 MG, 1X/DAY
     Route: 048
     Dates: start: 20100128
  7. HYDROCHLOROTHIAZIDE [Concomitant]
     Indication: HYPERTENSION
     Dosage: 50 MG, 1X/DAY
     Route: 048
     Dates: start: 20100128
  8. VITAMIN A [Concomitant]
     Dosage: UNK
     Dates: start: 20100205
  9. DOLOREX [Concomitant]
     Dosage: UNK
     Dates: start: 20100414
  10. ARCOXIA [Concomitant]
     Dosage: UNK
     Dates: start: 20100423

REACTIONS (3)
  - ANAEMIA [None]
  - PROCTITIS [None]
  - RECTAL HAEMORRHAGE [None]
